FAERS Safety Report 11025339 (Version 1)
Quarter: 2015Q2

REPORT INFORMATION
  Report Type: Spontaneous
  Country: US (occurrence: US)
  Receive Date: 20150414
  Receipt Date: 20150414
  Transmission Date: 20150821
  Serious: Yes (Other)
  Sender: FDA-Public Use
  Company Number: US-ASTRAZENECA-2015SE33321

PATIENT
  Sex: Male

DRUGS (1)
  1. BYETTA [Suspect]
     Active Substance: EXENATIDE
     Indication: TYPE 2 DIABETES MELLITUS
     Route: 065
     Dates: start: 200703, end: 2008

REACTIONS (2)
  - Pancreatic carcinoma [Unknown]
  - Bile duct cancer [Unknown]

NARRATIVE: CASE EVENT DATE: 20081010
